FAERS Safety Report 4578863-9 (Version None)
Quarter: 2005Q1

REPORT INFORMATION
  Report Type: 
  Country: None (occurrence: None)
  Receive Date: 20050211
  Receipt Date: 20050201
  Transmission Date: 20050727
  Serious: Yes (Death, Hospitalization)
  Sender: FDA-Public Use
  Company Number: FR-JNJFOC-20050106429

PATIENT
  Age: 57 Year
  Sex: Male

DRUGS (3)
  1. REOPRO [Suspect]
     Indication: ANGIOPLASTY
     Route: 042
  2. PLAVIX [Concomitant]
  3. ACETAMINOPHEN [Concomitant]

REACTIONS (3)
  - ANAEMIA [None]
  - DEATH [None]
  - HAEMORRHAGE [None]
